FAERS Safety Report 8354523-3 (Version None)
Quarter: 2012Q2

REPORT INFORMATION
  Report Type: 
  Country: None (occurrence: None)
  Receive Date: 20120511
  Receipt Date: 20120507
  Transmission Date: 20120825
  Serious: Yes (Death, Hospitalization)
  Sender: FDA-Public Use
  Company Number: JP-JNJFOC-20110203246

PATIENT
  Age: 90 Year
  Sex: Female
  Weight: 45 kg

DRUGS (6)
  1. LENDORMIN [Concomitant]
     Indication: INSOMNIA
     Route: 048
     Dates: start: 20020926, end: 20110101
  2. RISPERDAL [Suspect]
     Indication: DELUSION
     Route: 048
     Dates: start: 20110128, end: 20110129
  3. RISPERDAL [Suspect]
     Indication: HALLUCINATION
     Route: 048
     Dates: start: 20110128, end: 20110129
  4. AISLAR [Concomitant]
     Indication: ANGINA PECTORIS
     Route: 048
     Dates: start: 20050326, end: 20110101
  5. AMLODIPINE [Concomitant]
     Indication: HYPERTENSION
     Route: 048
  6. AMLODIPINE [Concomitant]
     Route: 048
     Dates: start: 20010926, end: 20110101

REACTIONS (4)
  - VENTRICULAR FIBRILLATION [None]
  - OLIGURIA [None]
  - PANCREATITIS ACUTE [None]
  - HYPOTHERMIA [None]
